FAERS Safety Report 16841537 (Version 5)
Quarter: 2020Q2

REPORT INFORMATION
  Report Type: Spontaneous
  Country: FR (occurrence: FR)
  Receive Date: 20190923
  Receipt Date: 20200427
  Transmission Date: 20200713
  Serious: Yes (Hospitalization)
  Sender: FDA-Public Use
  Company Number: FR-009507513-1909FRA008120

PATIENT
  Age: 37 Year
  Sex: Male
  Weight: 91 kg

DRUGS (8)
  1. TRIMEBUTINE [Suspect]
     Active Substance: TRIMEBUTINE
     Dosage: 2 G
     Route: 048
  2. ALPRAZOLAM. [Suspect]
     Active Substance: ALPRAZOLAM
     Dosage: 15 MG
     Route: 048
  3. LEVOTHYROXINE SODIUM. [Suspect]
     Active Substance: LEVOTHYROXINE SODIUM
     Route: 048
  4. IBUPROFEN. [Suspect]
     Active Substance: IBUPROFEN
     Dosage: 2.4 GRAM
     Route: 048
  5. PREDNISONE. [Suspect]
     Active Substance: PREDNISONE
     Dosage: 600 MILLIGRAM
     Route: 048
  6. DESLORATADINE. [Suspect]
     Active Substance: DESLORATADINE
     Dosage: 150 MG, UNK
     Route: 048
  7. PAROXETINE. [Suspect]
     Active Substance: PAROXETINE
     Dosage: 560 MG, UNK
     Route: 048
  8. COLCHICINE. [Suspect]
     Active Substance: COLCHICINE
     Dosage: 30 MG OR 0.33MG/KG
     Route: 048

REACTIONS (1)
  - Intentional overdose [Unknown]
